FAERS Safety Report 7515406-1 (Version None)
Quarter: 2011Q2

REPORT INFORMATION
  Report Type: 
  Country: None (occurrence: None)
  Receive Date: 20110601
  Receipt Date: 20100615
  Transmission Date: 20111010
  Serious: No
  Sender: FDA-Public Use
  Company Number: US-PFIZER INC-2010075504

PATIENT
  Age: 35 Year
  Sex: Female
  Weight: 81.633 kg

DRUGS (2)
  1. CHANTIX [Suspect]
     Indication: SMOKING CESSATION THERAPY
     Dosage: 0.5 MG, 1X/DAY
     Route: 048
     Dates: start: 20100601
  2. CHANTIX [Suspect]
     Dosage: 1 MG, 2X/DAY
     Route: 048
     Dates: start: 20100610, end: 20100611

REACTIONS (5)
  - MUSCLE SPASMS [None]
  - ABDOMINAL DISCOMFORT [None]
  - NIGHT SWEATS [None]
  - HEADACHE [None]
  - NAUSEA [None]
